FAERS Safety Report 9358174 (Version 1)
Quarter: 2013Q2

REPORT INFORMATION
  Report Type: Spontaneous
  Country: US (occurrence: None)
  Receive Date: 20130619
  Receipt Date: 20130619
  Transmission Date: 20140414
  Serious: No
  Sender: FDA-Public Use
  Company Number: None

PATIENT
  Age: 67 Year
  Sex: Female

DRUGS (5)
  1. GLEEVEC [Suspect]
     Route: 048
  2. GLEEVEC [Suspect]
     Route: 048
  3. OMEPRAZOLE [Concomitant]
  4. VALACYCLOVIR [Concomitant]
  5. DETROL LA [Concomitant]

REACTIONS (2)
  - Skin disorder [None]
  - Eyelid function disorder [None]
